FAERS Safety Report 18023506 (Version 5)
Quarter: 2022Q1

REPORT INFORMATION
  Report Type: Spontaneous
  Country: US (occurrence: US)
  Receive Date: 20200715
  Receipt Date: 20220119
  Transmission Date: 20220423
  Serious: Yes (Other)
  Sender: FDA-Public Use
  Company Number: US-GILEAD-2020-0477191

PATIENT
  Age: 39 Year
  Sex: Male
  Weight: 76.644 kg

DRUGS (23)
  1. ATRIPLA [Suspect]
     Active Substance: EFAVIRENZ\EMTRICITABINE\TENOFOVIR DISOPROXIL FUMARATE
     Indication: HIV infection
     Dosage: UNK
     Route: 048
     Dates: start: 200801, end: 201401
  2. ATRIPLA [Suspect]
     Active Substance: EFAVIRENZ\EMTRICITABINE\TENOFOVIR DISOPROXIL FUMARATE
     Dosage: 1 DOSAGE FORM, QD
     Route: 048
     Dates: start: 20100724, end: 201008
  3. VITAMIN D NOS [Concomitant]
     Active Substance: VITAMIN D NOS
  4. ACETAMINOPHEN [Concomitant]
     Active Substance: ACETAMINOPHEN
  5. AMOXICILLIN [Concomitant]
     Active Substance: AMOXICILLIN
  6. AMPICILLIN [Concomitant]
     Active Substance: AMPICILLIN
  7. ASPIRIN [Concomitant]
     Active Substance: ASPIRIN
  8. BACTRIM [Concomitant]
     Active Substance: SULFAMETHOXAZOLE\TRIMETHOPRIM
  9. CRESTOR [Concomitant]
     Active Substance: ROSUVASTATIN CALCIUM
  10. HEPARIN [Concomitant]
     Active Substance: HEPARIN SODIUM
  11. LEVOTHYROXINE [Concomitant]
     Active Substance: LEVOTHYROXINE
  12. PREDNISONE [Concomitant]
     Active Substance: PREDNISONE
  13. COMBIVIR [Concomitant]
     Active Substance: LAMIVUDINE\ZIDOVUDINE
  14. CLINDAMYCIN [Concomitant]
     Active Substance: CLINDAMYCIN
  15. SUSTIVA [Concomitant]
     Active Substance: EFAVIRENZ
  16. PREZISTA [Concomitant]
     Active Substance: DARUNAVIR ETHANOLATE
  17. NORVIR [Concomitant]
     Active Substance: RITONAVIR
  18. ISENTRESS [Concomitant]
     Active Substance: RALTEGRAVIR POTASSIUM
  19. FAMOTIDINE [Concomitant]
     Active Substance: FAMOTIDINE
  20. PENICILLIN [Concomitant]
     Active Substance: PENICILLIN
  21. INTELENCE [Concomitant]
     Active Substance: ETRAVIRINE
  22. SYNTHROID [Concomitant]
     Active Substance: LEVOTHYROXINE SODIUM
  23. PANTOPRAZOLE [Concomitant]
     Active Substance: PANTOPRAZOLE

REACTIONS (10)
  - Chronic kidney disease [Not Recovered/Not Resolved]
  - End stage renal disease [Not Recovered/Not Resolved]
  - Renal injury [Unknown]
  - Tooth loss [Not Recovered/Not Resolved]
  - Bone density decreased [Not Recovered/Not Resolved]
  - Pain [Unknown]
  - Emotional distress [Unknown]
  - Anxiety [Unknown]
  - Anhedonia [Unknown]
  - General physical health deterioration [Unknown]

NARRATIVE: CASE EVENT DATE: 20121001
